FAERS Safety Report 8077056-0 (Version None)
Quarter: 2012Q1

REPORT INFORMATION
  Report Type: 
  Country: None (occurrence: None)
  Receive Date: 20120127
  Receipt Date: 20120118
  Transmission Date: 20120608
  Serious: Yes (Other)
  Sender: FDA-Public Use
  Company Number: PHHY2009CA50402

PATIENT
  Sex: Male

DRUGS (3)
  1. XELODA [Concomitant]
  2. SANDOSTATIN LAR [Suspect]
     Indication: SMALL INTESTINE CARCINOMA
     Dosage: 30 MG, EVERY 4 WEEKS
     Route: 030
     Dates: start: 20091019
  3. TEMODAL [Concomitant]

REACTIONS (11)
  - INJECTION SITE DISCOMFORT [None]
  - NEOPLASM MALIGNANT [None]
  - HYPOAESTHESIA [None]
  - INJECTION SITE PAIN [None]
  - INJECTION SITE HAEMORRHAGE [None]
  - BLOOD PRESSURE DECREASED [None]
  - INTESTINAL PERFORATION [None]
  - MUSCLE SPASMS [None]
  - FATIGUE [None]
  - WEIGHT INCREASED [None]
  - ABDOMINAL PAIN UPPER [None]
